FAERS Safety Report 23069588 (Version 4)
Quarter: 2023Q4

REPORT INFORMATION
  Report Type: Spontaneous
  Country: CA (occurrence: CA)
  Receive Date: 20231016
  Receipt Date: 20231204
  Transmission Date: 20240110
  Serious: Yes (Other)
  Sender: FDA-Public Use
  Company Number: CA-PFIZER INC-202300259047

PATIENT
  Age: 70 Year
  Sex: Female

DRUGS (4)
  1. ABRILADA [Suspect]
     Active Substance: ADALIMUMAB-AFZB
     Indication: Crohn^s disease
     Dosage: W0 160MG, W2 80MG, AND THEN 40MG EVERY OTHER WEEK, PREFILLED PEN
     Route: 058
     Dates: start: 20230720
  2. ABRILADA [Suspect]
     Active Substance: ADALIMUMAB-AFZB
     Dosage: 40MG (0.8ML) EVERY OTHER WEEK (W0 160MG, W2 80MG, AND THEN 40MG EVERY OTHER WEEK)
     Route: 058
     Dates: start: 20231018
  3. ABRILADA [Suspect]
     Active Substance: ADALIMUMAB-AFZB
     Dosage: 40MG (0.8ML) EVERY OTHER WEEK (W0 160MG, W2 80MG, AND THEN 40MG EVERY OTHER WEEK)
     Route: 058
     Dates: start: 20231101
  4. METHOTREXATE [Concomitant]
     Active Substance: METHOTREXATE
     Dosage: 1 DF, UNKNOWN DOSE
     Route: 065

REACTIONS (4)
  - Immunodeficiency [Unknown]
  - Lyme disease [Recovering/Resolving]
  - Fatigue [Not Recovered/Not Resolved]
  - Arthropod bite [Unknown]

NARRATIVE: CASE EVENT DATE: 20230101
